FAERS Safety Report 5400984-9 (Version None)
Quarter: 2007Q3

REPORT INFORMATION
  Report Type: 
  Country: None (occurrence: None)
  Receive Date: 20070730
  Receipt Date: 20070723
  Transmission Date: 20080115
  Serious: Yes (Death, Hospitalization)
  Sender: FDA-Public Use
  Company Number: FR-MERCK-0707FRA00038

PATIENT
  Age: 70 Year
  Sex: Female

DRUGS (3)
  1. ZOCOR [Suspect]
     Indication: DYSLIPIDAEMIA
     Route: 048
     Dates: start: 20050101, end: 20070101
  2. ZOCOR [Suspect]
     Route: 048
     Dates: start: 20070101, end: 20070703
  3. HERBS (UNSPECIFIED) [Concomitant]
     Route: 048
     Dates: end: 20070701

REACTIONS (3)
  - ELECTROMECHANICAL DISSOCIATION [None]
  - MYALGIA [None]
  - RHABDOMYOLYSIS [None]
